FAERS Safety Report 8019519-X (Version None)
Quarter: 2012Q1

REPORT INFORMATION
  Report Type: 
  Country: None (occurrence: None)
  Receive Date: 20120103
  Receipt Date: 20120103
  Transmission Date: 20120608
  Serious: Yes (Death)
  Sender: FDA-Public Use
  Company Number: PHHY2010AU092642

PATIENT
  Sex: Female

DRUGS (1)
  1. ZOLEDRONOC ACID [Suspect]
     Dosage: 5 MG
     Route: 042
     Dates: start: 20090722

REACTIONS (1)
  - LUNG NEOPLASM MALIGNANT [None]
